FAERS Safety Report 9813397 (Version 1)
Quarter: 2014Q1

REPORT INFORMATION
  Report Type: Spontaneous
  Country: FR (occurrence: None)
  Receive Date: 20140109
  Receipt Date: 20140109
  Transmission Date: 20141002
  Serious: Yes (Death)
  Sender: FDA-Public Use
  Company Number: SYM-2013-14458

PATIENT
  Age: 59 Year
  Sex: Female

DRUGS (15)
  1. FLAGYL [Suspect]
     Indication: CEREBRAL TOXOPLASMOSIS
     Dosage: INTRAVENOUS {NOT OTHERWISE SPECIFIED}
     Route: 042
     Dates: start: 20131119, end: 20131122
  2. BACTRIM [Suspect]
     Indication: CEREBRAL TOXOPLASMOSIS
     Dosage: INTRAVENOUS (NOT OTHERWISE SPECIFIED)
     Route: 042
     Dates: start: 20131119
  3. AMBISOME [Suspect]
     Indication: HERPES SIMPLEX MENINGOENCEPHALITIS
     Dosage: INTRAVENOUS (NOT OTHERWISE SPECIFIED)
     Route: 042
     Dates: start: 20131119, end: 20131122
  4. TIENAM {PRIMAXIN} {IMIPENEM, CILASTATIN SODIUM} [Concomitant]
  5. ZYVOXID {LINEZOLID} {LINEZOLID} [Concomitant]
  6. CORTTANCYL {PREDNISONE} {PREDNISONE} [Concomitant]
  7. AXEPIM {CEFEPIME HYDROCHLORIDE} {CEFEPIME HYDROCHLORIDE} [Concomitant]
  8. ACICLOVIR {ACICLOVIR} {ACICLOVIR} [Concomitant]
  9. DEPAKINE {VALPROATE SODIUM} {VALPROATE SODIUM} [Concomitant]
  10. TAVANC {LEVOFLOXACIN} {LEVOFLOXACIN} [Concomitant]
  11. FUNGZIONE {AMPHOTERICIN B} {AMPHOTERICIN B} [Concomitant]
  12. TRIFUCAN {FLUCONAZOLE} {FLUCONAZOLE} [Concomitant]
  13. DELURSAN {URSODEOXYCHOLIC ACID} {URSODEOXYCHOLIC ACID} [Concomitant]
  14. HEPARINE {HEPARINE SODIUM} {HEPARINE SODIUM} [Concomitant]
  15. FASTURTEC {RASBURICASE} {RASBUICASE} [Concomitant]

REACTIONS (2)
  - Toxic epidermal necrolysis [None]
  - Coma [None]
